FAERS Safety Report 8137743-2 (Version None)
Quarter: 2012Q1

REPORT INFORMATION
  Report Type: 
  Country: None (occurrence: None)
  Receive Date: 20120215
  Receipt Date: 20120207
  Transmission Date: 20120608
  Serious: Yes (Hospitalization)
  Sender: FDA-Public Use
  Company Number: US-BAYER-2012-002209

PATIENT
  Age: 21 Year
  Sex: Female
  Weight: 99.773 kg

DRUGS (2)
  1. DROSPIRENONE AND ETHINYL ESTRADIOL [Suspect]
     Indication: CONTRACEPTION
     Dosage: UNK
     Route: 048
     Dates: start: 20080601, end: 20100301
  2. WEIGHT LOSS SUPPLEMENT [Concomitant]

REACTIONS (8)
  - DEPRESSION [None]
  - INJURY [None]
  - FEAR OF DEATH [None]
  - NERVOUSNESS [None]
  - EMOTIONAL DISTRESS [None]
  - CHEST PAIN [None]
  - CHOLECYSTECTOMY [None]
  - CHOLECYSTITIS ACUTE [None]
